FAERS Safety Report 13079753 (Version 1)
Quarter: 2017Q1

REPORT INFORMATION
  Report Type: Spontaneous
  Country: CN (occurrence: CN)
  Receive Date: 20170103
  Receipt Date: 20170103
  Transmission Date: 20170428
  Serious: Yes (Death, Other)
  Sender: FDA-Public Use
  Company Number: CN-TAKEDA-2016MPI011072

PATIENT
  Age: 63 Year
  Sex: Female

DRUGS (12)
  1. FUROSEMIDE. [Concomitant]
     Active Substance: FUROSEMIDE
     Dosage: 20 MG, UNK
     Route: 042
     Dates: start: 2013, end: 2013
  2. DEXAMETHASONE. [Suspect]
     Active Substance: DEXAMETHASONE
     Dosage: 20 MG, UNK
     Route: 065
     Dates: start: 20130911
  3. VELCADE [Suspect]
     Active Substance: BORTEZOMIB
     Indication: ANGIOIMMUNOBLASTIC T-CELL LYMPHOMA
     Dosage: 2.4 MG, UNK
     Route: 065
  4. DEXAMETHASONE. [Suspect]
     Active Substance: DEXAMETHASONE
     Indication: ANGIOIMMUNOBLASTIC T-CELL LYMPHOMA
     Dosage: 40 MG, UNK
     Route: 065
  5. CYCLOPHOSPHAMIDE. [Suspect]
     Active Substance: CYCLOPHOSPHAMIDE
     Indication: ANGIOIMMUNOBLASTIC T-CELL LYMPHOMA
     Dosage: 400 MG, BID
     Route: 065
  6. ADRIAMYCIN [Suspect]
     Active Substance: DOXORUBICIN HYDROCHLORIDE
     Indication: ANGIOIMMUNOBLASTIC T-CELL LYMPHOMA
     Dosage: 60 MG, UNK
     Route: 065
  7. IMIPENEM [Concomitant]
     Active Substance: IMIPENEM
     Dosage: UNK
     Route: 065
     Dates: start: 2013, end: 2013
  8. VELCADE [Suspect]
     Active Substance: BORTEZOMIB
     Dosage: 2.4 MG, UNK
     Route: 065
     Dates: start: 20130821
  9. DEXAMETHASONE. [Suspect]
     Active Substance: DEXAMETHASONE
     Dosage: 20 MG, UNK
     Route: 065
     Dates: start: 20130821
  10. VINCRISTINE [Suspect]
     Active Substance: VINCRISTINE
     Indication: ANGIOIMMUNOBLASTIC T-CELL LYMPHOMA
     Dosage: 2 MG, UNK
     Route: 065
  11. VELCADE [Suspect]
     Active Substance: BORTEZOMIB
     Dosage: 2.4 MG, UNK
     Route: 065
     Dates: start: 20130911
  12. CASPOFUNGIN [Concomitant]
     Active Substance: CASPOFUNGIN
     Dosage: UNK
     Route: 065
     Dates: start: 2013, end: 2013

REACTIONS (5)
  - Rash pruritic [Unknown]
  - Off label use [Unknown]
  - Bone marrow failure [Unknown]
  - Product use issue [Unknown]
  - Infection [Unknown]

NARRATIVE: CASE EVENT DATE: 2013
